FAERS Safety Report 23874249 (Version 1)
Quarter: 2024Q2

REPORT INFORMATION
  Report Type: Report from Study
  Country: IE (occurrence: IE)
  Receive Date: 20240520
  Receipt Date: 20240520
  Transmission Date: 20240715
  Serious: Yes (Hospitalization)
  Sender: FDA-Public Use
  Company Number: IE-BAXTER-2024BAX016579

PATIENT
  Age: 29 Year
  Sex: Male

DRUGS (3)
  1. VANCOMYCIN [Suspect]
     Active Substance: VANCOMYCIN
     Indication: Product used for unknown indication
     Dosage: UNK
     Route: 042
  2. DAPTOMYCIN [Suspect]
     Active Substance: DAPTOMYCIN
     Indication: Sepsis
     Dosage: 500 MILLIGRAM AT AN UNSPCIFIED FREQUENCY
     Route: 042
     Dates: start: 20240409
  3. VALTREX [Suspect]
     Active Substance: VALACYCLOVIR HYDROCHLORIDE
     Indication: Sepsis
     Dosage: BID (TWICE DAILY AT AN UNSPECIFIED DOSE)
     Route: 065

REACTIONS (5)
  - Eye swelling [Unknown]
  - Inflammation [Unknown]
  - Erythema [Unknown]
  - Hypersensitivity [Recovered/Resolved]
  - Rash [Unknown]

NARRATIVE: CASE EVENT DATE: 20240409
